FAERS Safety Report 7601799-3 (Version None)
Quarter: 2011Q3

REPORT INFORMATION
  Report Type: 
  Country: None (occurrence: None)
  Receive Date: 20110711
  Receipt Date: 20110629
  Transmission Date: 20111222
  Serious: No
  Sender: FDA-Public Use
  Company Number: US-ROXANE LABORATORIES, INC.-2011-RO-00915RO

PATIENT
  Sex: Female

DRUGS (2)
  1. MUCINEX D [Concomitant]
     Indication: NASAL CONGESTION
  2. FLUTICASONE PROPIONATE [Suspect]
     Indication: NASAL CONGESTION
     Route: 045
     Dates: start: 20110601, end: 20110629

REACTIONS (1)
  - DRUG INEFFECTIVE [None]
